FAERS Safety Report 6057754-0 (Version None)
Quarter: 2009Q1

REPORT INFORMATION
  Report Type: 
  Country: None (occurrence: None)
  Receive Date: 20090129
  Receipt Date: 20090114
  Transmission Date: 20090719
  Serious: Yes (Hospitalization)
  Sender: FDA-Public Use
  Company Number: PHRM2008FR00482

PATIENT
  Age: 75 Year
  Sex: Male

DRUGS (5)
  1. AREDIA [Suspect]
     Indication: PATHOLOGICAL FRACTURE
     Dates: start: 20040101, end: 20040101
  2. FOSAMAX [Suspect]
     Indication: RHEUMATOID ARTHRITIS
     Dosage: 70 MG, QW
     Route: 048
     Dates: start: 20050616, end: 20061015
  3. FOSAMAX [Suspect]
     Indication: RHEUMATOID ARTHRITIS
     Dosage: 10 MG/DAY
     Route: 048
     Dates: start: 20020615, end: 20050615
  4. CORTANCYL [Concomitant]
     Indication: RHEUMATOID ARTHRITIS
     Dosage: 5 MG/DAY
     Route: 048
  5. METHOTREXATE [Concomitant]
     Indication: RHEUMATOID ARTHRITIS
     Dosage: 3 DF/WEEK
     Route: 048

REACTIONS (8)
  - BONE SCAN ABNORMAL [None]
  - FACE AND MOUTH X-RAY ABNORMAL [None]
  - FIBULA FRACTURE [None]
  - GRANULOMA [None]
  - LYMPHADENOPATHY [None]
  - OSTEOLYSIS [None]
  - OSTEONECROSIS [None]
  - PAIN IN JAW [None]
